FAERS Safety Report 25887685 (Version 1)
Quarter: 2025Q4

REPORT INFORMATION
  Report Type: Report from Study
  Country: MX (occurrence: MX)
  Receive Date: 20251007
  Receipt Date: 20251007
  Transmission Date: 20260117
  Serious: Yes (Hospitalization)
  Sender: BIOGEN
  Company Number: MX-BIOGEN-2025BI01325814

PATIENT
  Age: 36 Year
  Sex: Female
  Weight: 60 kg

DRUGS (1)
  1. TYSABRI [Suspect]
     Active Substance: NATALIZUMAB
     Indication: Multiple sclerosis
     Dosage: 1 INTRAVENOUS INFUSION OF 300 MG OF TYSABRI (NATALIZUMAB) (FREQUENCY NOT PROVIDED)
     Route: 050
     Dates: start: 20171014

REACTIONS (2)
  - Multiple sclerosis relapse [Recovered/Resolved]
  - Gait disturbance [Not Recovered/Not Resolved]

NARRATIVE: CASE EVENT DATE: 20250924
